FAERS Safety Report 5423606-X (Version None)
Quarter: 2007Q3

REPORT INFORMATION
  Report Type: 
  Country: None (occurrence: None)
  Receive Date: 20070823
  Receipt Date: 20070822
  Transmission Date: 20080115
  Serious: Yes (Hospitalization)
  Sender: FDA-Public Use
  Company Number: US-BAYER-200616946BWH

PATIENT
  Age: 84 Year
  Sex: Female

DRUGS (5)
  1. NEXAVAR [Suspect]
     Indication: RENAL CELL CARCINOMA STAGE UNSPECIFIED
     Dosage: TOTAL DAILY DOSE: 800 MG  UNIT DOSE: 200 MG
     Route: 048
     Dates: start: 20061113, end: 20061116
  2. DILTIAZEM [Concomitant]
     Indication: HYPERTENSION
     Dates: end: 20061114
  3. DILTIAZEM [Concomitant]
     Dates: start: 20061115
  4. DIOVAN HCT [Concomitant]
  5. ASPIRIN [Concomitant]

REACTIONS (12)
  - ABDOMINAL PAIN [None]
  - ANXIETY [None]
  - GOUT [None]
  - HYPERTENSION [None]
  - HYPOCALCAEMIA [None]
  - HYPOMAGNESAEMIA [None]
  - LOCALISED INFECTION [None]
  - NAUSEA [None]
  - PAIN IN EXTREMITY [None]
  - PANCREATITIS ACUTE [None]
  - PYREXIA [None]
  - SEPSIS [None]
